FAERS Safety Report 6687137-1 (Version None)
Quarter: 2010Q2

REPORT INFORMATION
  Report Type: 
  Country: None (occurrence: None)
  Receive Date: 20100419
  Receipt Date: 20100331
  Transmission Date: 20101027
  Serious: Yes (Other)
  Sender: FDA-Public Use
  Company Number: US-ROCHE-697808

PATIENT
  Sex: Male

DRUGS (2)
  1. PEGASYS [Suspect]
     Indication: HEPATITIS B
     Route: 065
  2. COPEGUS [Suspect]
     Indication: HEPATITIS B
     Route: 065

REACTIONS (1)
  - ACQUIRED HAEMOPHILIA [None]
